FAERS Safety Report 19032200 (Version 3)
Quarter: 2021Q1

REPORT INFORMATION
  Report Type: Report from Study
  Country: MX (occurrence: MX)
  Receive Date: 20210319
  Receipt Date: 20210325
  Transmission Date: 20210420
  Serious: Yes (Death)
  Sender: FDA-Public Use
  Company Number: NVSC2021MX063794

PATIENT
  Age: 75 Year
  Sex: Female
  Weight: 49 kg

DRUGS (1)
  1. CO?DIOVAN [Suspect]
     Active Substance: HYDROCHLOROTHIAZIDE\VALSARTAN
     Indication: THROMBOSIS
     Dosage: 1 DF, BID, (160/12.5 MG)
     Route: 048

REACTIONS (3)
  - Breast cancer [Fatal]
  - Product use in unapproved indication [Unknown]
  - Off label use [Unknown]

NARRATIVE: CASE EVENT DATE: 201910
